FAERS Safety Report 25731946 (Version 1)
Quarter: 2025Q3

REPORT INFORMATION
  Report Type: Spontaneous
  Country: US (occurrence: None)
  Receive Date: 20250827
  Receipt Date: 20250827
  Transmission Date: 20251021
  Serious: No
  Sender: FDA-CTU
  Company Number: None

PATIENT
  Age: 42 Year
  Sex: Female
  Weight: 54 kg

DRUGS (4)
  1. SPIRONOLACTONE [Suspect]
     Active Substance: SPIRONOLACTONE
     Indication: Acne
     Route: 048
     Dates: start: 20240801, end: 20250804
  2. ENTYVIO [Concomitant]
     Active Substance: VEDOLIZUMAB
  3. ATOMOXETINE [Concomitant]
     Active Substance: ATOMOXETINE
  4. NURTEC ODT [Concomitant]
     Active Substance: RIMEGEPANT SULFATE

REACTIONS (5)
  - Libido decreased [None]
  - Partner stress [None]
  - Gastrointestinal disorder [None]
  - Menstruation irregular [None]
  - Product communication issue [None]

NARRATIVE: CASE EVENT DATE: 20250801
